FAERS Safety Report 20963445 (Version 1)
Quarter: 2022Q2

REPORT INFORMATION
  Report Type: Spontaneous
  Country: US (occurrence: None)
  Receive Date: 20220615
  Receipt Date: 20220615
  Transmission Date: 20220721
  Serious: No
  Sender: FDA-Public Use
  Company Number: None

PATIENT
  Age: 64 Year
  Sex: Female
  Weight: 108.86 kg

DRUGS (20)
  1. PIQRAY [Suspect]
     Active Substance: ALPELISIB
     Indication: Breast cancer female
     Dosage: FREQUENCY : DAILY;?
     Route: 048
     Dates: start: 202205
  2. ATENOLOL [Concomitant]
     Active Substance: ATENOLOL
  3. ATORVASTATIN [Concomitant]
     Active Substance: ATORVASTATIN
  4. CALCIUM [Concomitant]
     Active Substance: CALCIUM
  5. CAPECITABINE [Concomitant]
     Active Substance: CAPECITABINE
  6. CLONIDINE [Concomitant]
     Active Substance: CLONIDINE
  7. FIASP [Concomitant]
     Active Substance: INSULIN ASPART
  8. GLIMEPIRIDE [Concomitant]
     Active Substance: GLIMEPIRIDE
  9. KLOR-CON M10 [Concomitant]
     Active Substance: POTASSIUM CHLORIDE
  10. LASIX [Concomitant]
     Active Substance: FUROSEMIDE
  11. LOSARTAN [Concomitant]
     Active Substance: LOSARTAN
  12. MELOXICAM [Concomitant]
     Active Substance: MELOXICAM
  13. METFORMIN [Concomitant]
     Active Substance: METFORMIN HYDROCHLORIDE
  14. NYSTATIN [Concomitant]
     Active Substance: NYSTATIN
  15. OMEPRAZOLE [Concomitant]
     Active Substance: OMEPRAZOLE
  16. ONDANSETRON [Concomitant]
     Active Substance: ONDANSETRON
  17. PERCOCET [Concomitant]
     Active Substance: ACETAMINOPHEN\OXYCODONE HYDROCHLORIDE
  18. TRAZODONE [Concomitant]
     Active Substance: TRAZODONE HYDROCHLORIDE
  19. TRESIBA [Concomitant]
     Active Substance: INSULIN DEGLUDEC
  20. VITAMIN D3 [Concomitant]
     Active Substance: CHOLECALCIFEROL

REACTIONS (2)
  - Disease progression [None]
  - Therapy change [None]
